FAERS Safety Report 7814532-7 (Version None)
Quarter: 2011Q4

REPORT INFORMATION
  Report Type: 
  Country: None (occurrence: None)
  Receive Date: 20111014
  Receipt Date: 20111012
  Transmission Date: 20120403
  Serious: Yes (Death, Other)
  Sender: FDA-Public Use
  Company Number: PHEH2009US02491

PATIENT
  Sex: Female

DRUGS (8)
  1. SYNTHROID [Concomitant]
  2. ESTRADIOL [Concomitant]
  3. LORTAB [Concomitant]
  4. CLINDAMYCIN [Concomitant]
  5. EFFEXOR [Concomitant]
  6. ACIPHEX [Concomitant]
  7. AREDIA [Suspect]
     Indication: MULTIPLE MYELOMA
  8. PREVACID [Concomitant]

REACTIONS (20)
  - OSTEONECROSIS OF JAW [None]
  - SOFT TISSUE MASS [None]
  - OSTEOPENIA [None]
  - DEPRESSION [None]
  - INFLAMMATION [None]
  - DEATH [None]
  - SYNOVIAL CYST [None]
  - ASTHMA [None]
  - GENERAL PHYSICAL HEALTH DETERIORATION [None]
  - ATELECTASIS [None]
  - PAIN [None]
  - ABSCESS [None]
  - ANXIETY [None]
  - INTERVERTEBRAL DISC DEGENERATION [None]
  - OSTEOMYELITIS ACUTE [None]
  - DECREASED INTEREST [None]
  - POST PROCEDURAL HAEMATOMA [None]
  - ASCITES [None]
  - ILEUS [None]
  - PARAESTHESIA [None]
